FAERS Safety Report 25597541 (Version 3)
Quarter: 2025Q3

REPORT INFORMATION
  Report Type: Spontaneous
  Country: JP (occurrence: JP)
  Receive Date: 20250723
  Receipt Date: 20250805
  Transmission Date: 20251021
  Serious: Yes (Other)
  Sender: TAKEDA
  Company Number: JP-TAKEDA-2025TUS065385

PATIENT
  Age: 75 Year
  Sex: Male

DRUGS (1)
  1. LANSOPRAZOLE [Suspect]
     Active Substance: LANSOPRAZOLE
     Indication: Abdominal discomfort

REACTIONS (3)
  - Gastric cancer [Unknown]
  - Lymphoma [Unknown]
  - Abdominal discomfort [Unknown]
